FAERS Safety Report 6233400-8 (Version None)
Quarter: 2009Q2

REPORT INFORMATION
  Report Type: 
  Country: None (occurrence: None)
  Receive Date: 20090617
  Receipt Date: 20080812
  Transmission Date: 20091009
  Serious: No
  Sender: FDA-Public Use
  Company Number: US-TYCO HEALTHCARE/MALLINCKRODT-T200801332

PATIENT

DRUGS (2)
  1. ULTRATAG [Suspect]
     Indication: MULTIPLE GATED ACQUISITION SCAN
     Dosage: 5 ML, SINGLE
     Dates: start: 20080811, end: 20080811
  2. ULTRA-TECHNEKOW [Concomitant]
     Indication: MULTIPLE GATED ACQUISITION SCAN
     Dosage: 34 MCI, SINGLE
     Dates: start: 20080811, end: 20080811

REACTIONS (1)
  - DRUG INEFFECTIVE [None]
